FAERS Safety Report 22079691 (Version 5)
Quarter: 2023Q2

REPORT INFORMATION
  Report Type: Report from Study
  Country: VN (occurrence: VN)
  Receive Date: 20230309
  Receipt Date: 20230605
  Transmission Date: 20230721
  Serious: Yes (Hospitalization)
  Sender: FDA-Public Use
  Company Number: VN-002147023-NVSC2023VN048819

PATIENT
  Age: 50 Year
  Sex: Male
  Weight: 52 kg

DRUGS (16)
  1. EGATEN [Suspect]
     Active Substance: TRICLABENDAZOLE
     Indication: Fascioliasis
     Dosage: 625 MG, Q12H
     Route: 048
     Dates: start: 20230201
  2. ARGININ [Concomitant]
     Indication: Fascioliasis
     Dosage: UNK
     Route: 065
     Dates: start: 20230202, end: 20230303
  3. ACETAMINOPHEN [Concomitant]
     Active Substance: ACETAMINOPHEN
     Indication: Pyrexia
     Dosage: UNK
     Route: 065
     Dates: start: 20230202, end: 20230202
  4. DIETARY SUPPLEMENT\HERBALS\MILK THISTLE [Concomitant]
     Active Substance: MILK THISTLE
     Indication: Fascioliasis
     Dosage: UNK
     Route: 065
     Dates: start: 20230202, end: 20230303
  5. DIETARY SUPPLEMENT\HERBALS\MILK THISTLE [Concomitant]
     Active Substance: MILK THISTLE
     Indication: Sepsis
     Dosage: UNK
     Route: 065
     Dates: start: 20230209, end: 20230220
  6. CIPROFLOXACIN [Concomitant]
     Active Substance: CIPROFLOXACIN
     Indication: Sepsis
     Dosage: UNK
     Route: 065
     Dates: start: 20230209, end: 20230220
  7. PIPERACILLIN SODIUM\TAZOBACTAM SODIUM [Concomitant]
     Active Substance: PIPERACILLIN SODIUM\TAZOBACTAM SODIUM
     Indication: Sepsis
     Dosage: UNK
     Route: 065
     Dates: start: 20230209, end: 20230214
  8. FAMOTIDINE [Concomitant]
     Active Substance: FAMOTIDINE
     Indication: Sepsis
     Dosage: UNK
     Route: 065
     Dates: start: 20230209, end: 20230220
  9. ORNITHINE ASPARTATE [Concomitant]
     Active Substance: ORNITHINE ASPARTATE
     Indication: Sepsis
     Dosage: UNK
     Route: 065
     Dates: start: 20230209, end: 20230220
  10. ERTAPENEM [Concomitant]
     Active Substance: ERTAPENEM
     Indication: Sepsis
     Dosage: UNK
     Route: 065
     Dates: start: 20230215, end: 20230220
  11. ERTAPENEM [Concomitant]
     Active Substance: ERTAPENEM
     Indication: Pneumonia
  12. GLUCOLYTE-2 [Concomitant]
     Indication: Sepsis
     Dosage: UNK
     Route: 065
     Dates: start: 20230215, end: 20230216
  13. GLUCOLYTE-2 [Concomitant]
     Indication: Pneumonia
  14. KIDDOVIT [Concomitant]
     Indication: Pneumonia
     Dosage: UNK
     Route: 065
     Dates: start: 20230220, end: 20230226
  15. LEVOFLOXACIN [Concomitant]
     Active Substance: LEVOFLOXACIN
     Indication: Pneumonia
     Dosage: UNK
     Route: 065
     Dates: start: 20230220, end: 20230226
  16. AMOXICILLIN [Concomitant]
     Active Substance: AMOXICILLIN
     Indication: Pneumonia
     Dosage: 875/125DT
     Route: 065
     Dates: start: 20230220, end: 20230226

REACTIONS (1)
  - Gastrooesophageal reflux disease [Recovering/Resolving]

NARRATIVE: CASE EVENT DATE: 20230223
